FAERS Safety Report 7288433-X (Version None)
Quarter: 2011Q1

REPORT INFORMATION
  Report Type: 
  Country: None (occurrence: None)
  Receive Date: 20110211
  Receipt Date: 20110204
  Transmission Date: 20110831
  Serious: Yes (Other)
  Sender: FDA-Public Use
  Company Number: A0912753A

PATIENT
  Sex: Female

DRUGS (2)
  1. IMITREX [Suspect]
     Dosage: 50MG UNKNOWN
     Route: 065
     Dates: start: 20100317
  2. VERDESO [Suspect]
     Dosage: .05PCT UNKNOWN
     Route: 065
     Dates: start: 20100317

REACTIONS (2)
  - SUICIDAL IDEATION [None]
  - EUPHORIC MOOD [None]
